FAERS Safety Report 7604376-3 (Version None)
Quarter: 2011Q3

REPORT INFORMATION
  Report Type: 
  Country: None (occurrence: None)
  Receive Date: 20110712
  Receipt Date: 20110707
  Transmission Date: 20111222
  Serious: No
  Sender: FDA-Public Use
  Company Number: US-PFIZER INC-2011154445

PATIENT
  Sex: Female
  Weight: 59 kg

DRUGS (6)
  1. ALBUTEROL SULFATE AUTOHALER [Concomitant]
     Indication: EMPHYSEMA
     Dosage: UNK
  2. CHANTIX [Suspect]
     Indication: SMOKING CESSATION THERAPY
     Dosage: 0.5 MG,DAILY
     Route: 048
     Dates: start: 20110601, end: 20110601
  3. SPIRIVA [Concomitant]
     Indication: EMPHYSEMA
     Dosage: UNK
  4. CHANTIX [Suspect]
     Dosage: 1 MG, 2X/DAY
     Route: 048
     Dates: start: 20110601
  5. SPIRIVA [Concomitant]
     Indication: CHRONIC OBSTRUCTIVE PULMONARY DISEASE
  6. ALBUTEROL SULFATE AUTOHALER [Concomitant]
     Indication: CHRONIC OBSTRUCTIVE PULMONARY DISEASE

REACTIONS (1)
  - INSOMNIA [None]
